FAERS Safety Report 7047554-7 (Version None)
Quarter: 2010Q4

REPORT INFORMATION
  Report Type: 
  Country: None (occurrence: None)
  Receive Date: 20101015
  Receipt Date: 20101013
  Transmission Date: 20110411
  Serious: Yes (Death)
  Sender: FDA-Public Use
  Company Number: US-PFIZER INC-2010130578

PATIENT
  Sex: Male

DRUGS (3)
  1. ALDACTAZIDE [Suspect]
  2. ALDACTONE [Suspect]
  3. NORVASC [Suspect]

REACTIONS (1)
  - DEATH [None]
